FAERS Safety Report 8877829 (Version 1)
Quarter: 2012Q4

REPORT INFORMATION
  Report Type: 
  Country: US (occurrence: US)
  Receive Date: 20121025
  Receipt Date: 20121025
  Transmission Date: 20130627
  Serious: Yes (Disabling, Other)
  Sender: FDA-Public Use
  Company Number: US-AMGEN-USASP2012019943

PATIENT
  Age: 48 Year
  Sex: Female
  Weight: 78.46 kg

DRUGS (4)
  1. ENBREL [Suspect]
     Indication: RHEUMATOID ARTHRITIS
     Dosage: 50 mg, qwk
     Route: 058
     Dates: start: 20081101, end: 20090201
  2. REMICADE [Suspect]
     Indication: RHEUMATOID ARTHRITIS
     Dosage: 400 mg, every 5 weeks
     Dates: start: 20010101, end: 20110301
  3. PREDNISONE [Concomitant]
     Dosage: UNK
     Dates: start: 2001
  4. VICODIN [Concomitant]
     Dosage: UNK
     Dates: start: 2001

REACTIONS (1)
  - Extranodal marginal zone B-cell lymphoma (MALT type) [Unknown]
